FAERS Safety Report 18562232 (Version 1)
Quarter: 2020Q4

REPORT INFORMATION
  Report Type: Other
  Country: CN (occurrence: CN)
  Receive Date: 20201201
  Receipt Date: 20201201
  Transmission Date: 20210114
  Serious: Yes (Other)
  Sender: FDA-Public Use
  Company Number: CN-ROCHE-2721302

PATIENT

DRUGS (2)
  1. BEVACIZUMAB. [Suspect]
     Active Substance: BEVACIZUMAB
     Indication: NON-SMALL CELL LUNG CANCER
     Route: 041
  2. GEFITINIB. [Suspect]
     Active Substance: GEFITINIB
     Indication: NON-SMALL CELL LUNG CANCER
     Dosage: THE TREATMENT WAS PERFORMED FOR 3 TREATMENT CYCLES (1 TREATMENT CYCLE WAS 3 WEEKS).
     Route: 048

REACTIONS (3)
  - Gastrointestinal disorder [Unknown]
  - Interstitial lung disease [Unknown]
  - Rash [Unknown]
